FAERS Safety Report 18980499 (Version 3)
Quarter: 2021Q1

REPORT INFORMATION
  Report Type: Spontaneous
  Country: US (occurrence: US)
  Receive Date: 20210308
  Receipt Date: 20210324
  Transmission Date: 20210420
  Serious: Yes (Other)
  Sender: FDA-Public Use
  Company Number: US-PFIZER INC-2021226980

PATIENT
  Age: 60 Year
  Sex: Male

DRUGS (1)
  1. INLYTA [Suspect]
     Active Substance: AXITINIB
     Dosage: 5 MG
     Route: 048
     Dates: start: 20210201

REACTIONS (14)
  - Dizziness [Unknown]
  - Decreased appetite [Unknown]
  - Swelling [Unknown]
  - Hypophagia [Unknown]
  - Fluid intake reduced [Unknown]
  - Blood potassium increased [Unknown]
  - Constipation [Recovered/Resolved]
  - Memory impairment [Unknown]
  - Haemoglobin decreased [Unknown]
  - Blood pressure fluctuation [Unknown]
  - Malaise [Unknown]
  - Arthralgia [Unknown]
  - Diarrhoea [Unknown]
  - Lymphadenopathy [Unknown]

NARRATIVE: CASE EVENT DATE: 2021
